FAERS Safety Report 15630955 (Version 1)
Quarter: 2018Q4

REPORT INFORMATION
  Report Type: Spontaneous
  Country: FR (occurrence: FR)
  Receive Date: 20181119
  Receipt Date: 20181119
  Transmission Date: 20190205
  Serious: Yes (Other)
  Sender: FDA-Public Use
  Company Number: FR-AUROBINDO-AUR-APL-2018-055404

PATIENT
  Age: 81 Year
  Sex: Female

DRUGS (4)
  1. ZOPHREN                            /00955302/ [Suspect]
     Active Substance: ONDANSETRON
     Indication: PREMEDICATION
     Dosage: 8 MILLIGRAM (4?ME CYCLE)
     Route: 042
     Dates: start: 20180810, end: 20180810
  2. LEVOFOLINATE DE CALCIUM [Suspect]
     Active Substance: LEVOLEUCOVORIN CALCIUM
     Indication: CHEMOTHERAPY
     Dosage: 4?ME CYCLE
     Route: 042
     Dates: start: 20180810, end: 20180810
  3. OXALIPLATIN. [Suspect]
     Active Substance: OXALIPLATIN
     Indication: CHEMOTHERAPY
     Dosage: 4?ME CYCLE
     Route: 042
     Dates: start: 20180810, end: 20180810
  4. SOLU-MEDROL [Suspect]
     Active Substance: METHYLPREDNISOLONE SODIUM SUCCINATE
     Indication: PREMEDICATION
     Dosage: 80 MILLIGRAM (4?ME CYCLE)
     Route: 042
     Dates: start: 20180810, end: 20180810

REACTIONS (1)
  - Tremor [Recovered/Resolved]

NARRATIVE: CASE EVENT DATE: 20180810
